FAERS Safety Report 9338452 (Version 1)
Quarter: 2013Q2

REPORT INFORMATION
  Report Type: Spontaneous
  Country: US (occurrence: US)
  Receive Date: 20130610
  Receipt Date: 20130610
  Transmission Date: 20140414
  Serious: Yes (Other)
  Sender: FDA-Public Use
  Company Number: US-PFIZER INC-2013169779

PATIENT
  Sex: 0

DRUGS (1)
  1. SOMAVERT [Suspect]
     Dosage: UNK
     Dates: end: 201303

REACTIONS (1)
  - Transaminases increased [Unknown]
